FAERS Safety Report 16445574 (Version 2)
Quarter: 2019Q3

REPORT INFORMATION
  Report Type: Spontaneous
  Country: US (occurrence: US)
  Receive Date: 20190618
  Receipt Date: 20190729
  Transmission Date: 20191004
  Serious: No
  Sender: FDA-Public Use
  Company Number: US-PFIZER INC-2019254535

PATIENT
  Age: 70 Year
  Sex: Female
  Weight: 58.51 kg

DRUGS (2)
  1. GABAPENTIN. [Suspect]
     Active Substance: GABAPENTIN
     Indication: SEIZURE
     Dosage: UNK,(5-6 TIMES PER DAY)
  2. GABAPENTIN. [Suspect]
     Active Substance: GABAPENTIN
     Indication: BACK PAIN

REACTIONS (4)
  - Drug ineffective [Unknown]
  - Off label use [Unknown]
  - Abnormal behaviour [Unknown]
  - Product dose omission [Unknown]
